FAERS Safety Report 24549896 (Version 3)
Quarter: 2024Q4

REPORT INFORMATION
  Report Type: Report from Study
  Country: JP (occurrence: JP)
  Receive Date: 20241025
  Receipt Date: 20241206
  Transmission Date: 20250114
  Serious: Yes (Other)
  Sender: ROCHE
  Company Number: JP-CHUGAI-2024036248AA

PATIENT
  Age: 58 Year
  Sex: Female
  Weight: 50.2 kg

DRUGS (2)
  1. PHESGO [Suspect]
     Active Substance: HYALURONIDASE-ZZXF\PERTUZUMAB\TRASTUZUMAB
     Indication: HER2 positive colorectal cancer
     Dosage: 10 MILLILITER, ONCE/3WEEKS, 15 MILLILITER, PERTUZUMAB(1200 MILLIGRAM), TRASTUZUMAB(600 MILLIGRAM)
     Route: 058
     Dates: start: 20240816, end: 20240816
  2. PHESGO [Suspect]
     Active Substance: HYALURONIDASE-ZZXF\PERTUZUMAB\TRASTUZUMAB
     Dosage: 10 MILLILITER, PERTUZUMAB(600 MILLIGRAM), TRASTUZUMAB(600 MILLIGRAM)
     Route: 058
     Dates: start: 20240906, end: 20240906

REACTIONS (3)
  - Disease progression [Unknown]
  - Metastasis [Unknown]
  - Drug ineffective [Unknown]
